FAERS Safety Report 6815113-4 (Version None)
Quarter: 2010Q2

REPORT INFORMATION
  Report Type: 
  Country: None (occurrence: None)
  Receive Date: 20100630
  Receipt Date: 20100630
  Transmission Date: 20101027
  Serious: Yes (Other)
  Sender: FDA-Public Use
  Company Number: None

PATIENT
  Age: 28 Year
  Sex: Female
  Weight: 68.0396 kg

DRUGS (1)
  1. DOXYCYCLINE UNSURE UNSURE [Suspect]
     Indication: LYME DISEASE
     Dosage: 1 PILL 2 TIMES PER DAY PO
     Route: 048
     Dates: start: 20100607, end: 20100617

REACTIONS (9)
  - BURN OESOPHAGEAL [None]
  - DYSPEPSIA [None]
  - FLUID INTAKE REDUCED [None]
  - FOREIGN BODY [None]
  - HYPOPHAGIA [None]
  - MYOCARDIAL INFARCTION [None]
  - NO THERAPEUTIC RESPONSE [None]
  - PAIN [None]
  - THROAT IRRITATION [None]
